FAERS Safety Report 9636472 (Version 1)
Quarter: 2013Q4

REPORT INFORMATION
  Report Type: Spontaneous
  Country: US (occurrence: US)
  Receive Date: 20131021
  Receipt Date: 20131021
  Transmission Date: 20140711
  Serious: Yes (Hospitalization, Other)
  Sender: FDA-Public Use
  Company Number: US-TEVA-439040USA

PATIENT
  Age: 29 Year
  Sex: Male

DRUGS (11)
  1. CARBOPLATIN [Suspect]
     Dates: start: 20130723
  2. ZOLOFT [Concomitant]
  3. OMEPRAZOLE [Concomitant]
  4. DEXOMETHASONE [Concomitant]
  5. ACCUPRIL [Concomitant]
  6. DOCUSATE [Concomitant]
  7. OXYCODONE/APAP [Concomitant]
  8. METRONIDAZOLE [Concomitant]
  9. ZOFRAN [Concomitant]
  10. NEULASTA [Concomitant]
  11. ETOPOSIDE [Concomitant]

REACTIONS (2)
  - Febrile neutropenia [Recovered/Resolved]
  - Product contamination microbial [Unknown]
